FAERS Safety Report 5357994-X (Version None)
Quarter: 2007Q2

REPORT INFORMATION
  Report Type: 
  Country: None (occurrence: None)
  Receive Date: 20070612
  Receipt Date: 20070530
  Transmission Date: 20071010
  Serious: Yes (Other)
  Sender: FDA-Public Use
  Company Number: 310061K07USA

PATIENT
  Age: 37 Year
  Sex: Female

DRUGS (1)
  1. GONAL-F [Suspect]
     Indication: INFERTILITY
     Dosage: 150 IU
     Dates: start: 20070101

REACTIONS (2)
  - ABORTION SPONTANEOUS [None]
  - DRUG EXPOSURE DURING PREGNANCY [None]
